FAERS Safety Report 4367806-9 (Version None)
Quarter: 2004Q2

REPORT INFORMATION
  Report Type: 
  Country: None (occurrence: None)
  Receive Date: 20040526
  Receipt Date: 20040318
  Transmission Date: 20050107
  Serious: Yes (Death)
  Sender: FDA-Public Use
  Company Number: USA040360742

PATIENT
  Age: 47 Year
  Sex: Male

DRUGS (4)
  1. ZYPREXA [Suspect]
     Indication: DEPRESSION
     Dosage: 5 MG/1 DAY
     Dates: start: 20040201
  2. ZYPREXA [Suspect]
     Indication: SLEEP DISORDER
     Dosage: 5 MG/1 DAY
     Dates: start: 20040201
  3. ZOLOFT [Concomitant]
  4. .. [Suspect]

REACTIONS (2)
  - COMPLETED SUICIDE [None]
  - DRUG INEFFECTIVE [None]
